FAERS Safety Report 7714079-2 (Version None)
Quarter: 2011Q3

REPORT INFORMATION
  Report Type: 
  Country: None (occurrence: None)
  Receive Date: 20110826
  Receipt Date: 20100803
  Transmission Date: 20111222
  Serious: Yes (Other)
  Sender: FDA-Public Use
  Company Number: JP-SANTEN INC.-INC-11-000026

PATIENT
  Sex: Female

DRUGS (1)
  1. LEVOFLOXACIN [Suspect]
     Indication: CORNEAL EROSION
     Route: 047
     Dates: start: 20100803, end: 20100803

REACTIONS (1)
  - ANAPHYLACTOID REACTION [None]
